FAERS Safety Report 15321416 (Version 1)
Quarter: 2018Q3

REPORT INFORMATION
  Report Type: Spontaneous
  Country: FR (occurrence: FR)
  Receive Date: 20180827
  Receipt Date: 20180827
  Transmission Date: 20181010
  Serious: Yes (Other)
  Sender: FDA-Public Use
  Company Number: FR-TEVA-2018-FR-947743

PATIENT
  Age: 64 Year
  Sex: Female

DRUGS (1)
  1. PROPRANOLOL [Suspect]
     Active Substance: PROPRANOLOL HYDROCHLORIDE
     Indication: HYPERTENSION
     Dosage: 1.5 DOSAGE FORMS DAILY; 0.5DF IN THE MORNING AND 1DF IN THE EVENING
     Route: 048
     Dates: start: 201802

REACTIONS (5)
  - Incorrect dose administered [Unknown]
  - Hot flush [Unknown]
  - Fatigue [Unknown]
  - Arrhythmia [Unknown]
  - Gamma-glutamyltransferase increased [Unknown]

NARRATIVE: CASE EVENT DATE: 20180814
